FAERS Safety Report 8696099 (Version 3)
Quarter: 2013Q3

REPORT INFORMATION
  Report Type: Spontaneous
  Country: US (occurrence: US)
  Receive Date: 20120801
  Receipt Date: 20130711
  Transmission Date: 20140515
  Serious: No
  Sender: FDA-Public Use
  Company Number: US-009507513-2012SP022027

PATIENT
  Age: 27 Year
  Sex: Female
  Weight: 142.86 kg

DRUGS (4)
  1. IMPLANON [Suspect]
     Dosage: UNK
     Dates: start: 201011
  2. XANAX [Concomitant]
     Indication: PRODUCT USED FOR UNKNOWN INDICATION
  3. CITALOPRAM [Concomitant]
     Indication: PRODUCT USED FOR UNKNOWN INDICATION
  4. VITAMINS (UNSPECIFIED) [Concomitant]
     Indication: PREGNANCY
     Dosage: 27 MG, UNK
     Dates: start: 20120502

REACTIONS (4)
  - Unintended pregnancy [Recovered/Resolved]
  - Incorrect route of drug administration [Unknown]
  - Drug dose omission [Unknown]
  - Medical device complication [Unknown]
